FAERS Safety Report 4765626-4 (Version None)
Quarter: 2005Q3

REPORT INFORMATION
  Report Type: 
  Country: None (occurrence: None)
  Receive Date: 20050906
  Receipt Date: 20050823
  Transmission Date: 20060218
  Serious: Yes (Life-Threatening, Hospitalization)
  Sender: FDA-Public Use
  Company Number: 2005119581

PATIENT
  Age: 55 Year
  Sex: Male

DRUGS (5)
  1. ATORVASTATIN CALCIUM [Suspect]
     Indication: BLOOD CHOLESTEROL INCREASED
     Dosage: ORAL
     Route: 048
     Dates: start: 20050813
  2. DICLOFENAC SODIUM [Suspect]
     Indication: ILL-DEFINED DISORDER
  3. AMITRIPTYLINE HYDROCHLORIDE [Suspect]
     Indication: ILL-DEFINED DISORDER
  4. ATENOLOL [Suspect]
     Indication: ILL-DEFINED DISORDER
  5. DIHYDROCODEINE (DIHYDROCODEINE) [Suspect]
     Indication: ILL-DEFINED DISORDER

REACTIONS (5)
  - DIZZINESS [None]
  - FALL [None]
  - MULTIPLE DRUG OVERDOSE [None]
  - RENAL FAILURE ACUTE [None]
  - RHABDOMYOLYSIS [None]
